FAERS Safety Report 7878521-9 (Version None)
Quarter: 2011Q4

REPORT INFORMATION
  Report Type: 
  Country: None (occurrence: None)
  Receive Date: 20111014
  Receipt Date: 20110509
  Transmission Date: 20120403
  Serious: Yes (Other)
  Sender: FDA-Public Use
  Company Number: 1000020784

PATIENT
  Age: 67 Year
  Sex: Female

DRUGS (8)
  1. SEROQUEL [Concomitant]
  2. SYNTHROID [Concomitant]
  3. COREG [Concomitant]
  4. XANAX [Concomitant]
  5. LEXAPRO [Suspect]
     Indication: DEPRESSION
     Dosage: 10 MG (10 MG, 1 IN 1 D), ORAL; 10 MG EVERY OTHER DAY (10 MG, 1 IN 2 D), ORAL
     Dates: start: 20110401, end: 20110501
  6. LEXAPRO [Suspect]
     Indication: ANXIETY
     Dosage: 10 MG (10 MG, 1 IN 1 D), ORAL; 10 MG EVERY OTHER DAY (10 MG, 1 IN 2 D), ORAL
     Dates: start: 20110401, end: 20110501
  7. LEXAPRO [Suspect]
     Indication: DEPRESSION
     Dosage: 10 MG (10 MG, 1 IN 1 D), ORAL; 10 MG EVERY OTHER DAY (10 MG, 1 IN 2 D), ORAL
     Dates: start: 20110501
  8. LEXAPRO [Suspect]
     Indication: ANXIETY
     Dosage: 10 MG (10 MG, 1 IN 1 D), ORAL; 10 MG EVERY OTHER DAY (10 MG, 1 IN 2 D), ORAL
     Dates: start: 20110501

REACTIONS (3)
  - SUICIDAL IDEATION [None]
  - ANXIETY [None]
  - FEELING JITTERY [None]
